FAERS Safety Report 15941095 (Version 2)
Quarter: 2019Q1

REPORT INFORMATION
  Report Type: Spontaneous
  Country: EG (occurrence: EG)
  Receive Date: 20190208
  Receipt Date: 20190213
  Transmission Date: 20190417
  Serious: Yes (Hospitalization)
  Sender: FDA-Public Use
  Company Number: EG-NOVOPROD-645407

PATIENT
  Age: 62 Year
  Sex: Male
  Weight: 85 kg

DRUGS (8)
  1. CALCI MAX [Concomitant]
     Active Substance: CALCIUM CARBONATE
     Indication: PRODUCT USED FOR UNKNOWN INDICATION
     Dosage: 1 TOTAL, QD (STARTED 1 MONTH AFTER 7-MAY-2018)
     Route: 048
  2. MIXTARD 30 HM PENFILL [Suspect]
     Active Substance: INSULIN HUMAN
     Indication: DIABETES MELLITUS
     Dosage: 50 IU, QD (30 IU MORNING AND 20 IU AT NIGHT)
     Route: 058
     Dates: start: 20180507
  3. MIXTARD 30 HM PENFILL [Suspect]
     Active Substance: INSULIN HUMAN
     Dosage: 60 IU, QD
     Route: 058
  4. ROSUVAS [Concomitant]
     Indication: PRODUCT USED FOR UNKNOWN INDICATION
     Dosage: 1 TOTAL, QD (STARTED AFTER7 ,MAY 2018 BY 1 MONTH)
     Route: 048
  5. MILGA [Concomitant]
     Indication: PRODUCT USED FOR UNKNOWN INDICATION
     Dosage: 2 TOTAL, QD
     Route: 048
  6. THIOTACID [Concomitant]
     Indication: PRODUCT USED FOR UNKNOWN INDICATION
     Dosage: 2 TOTAL, QD
     Route: 048
  7. ASPRIN [Concomitant]
     Active Substance: ASPIRIN
     Indication: PRODUCT USED FOR UNKNOWN INDICATION
     Dosage: 1 TOTAL, QD (STARTED AFTER 7 MAY 2018 BY 1 MONTH)
     Route: 048
  8. CONCOR [Concomitant]
     Active Substance: BISOPROLOL FUMARATE
     Indication: PRODUCT USED FOR UNKNOWN INDICATION
     Dosage: 1 TOTAL, QD (STARTED 1 MONTH AFTER 7 MAY 2018)
     Route: 048

REACTIONS (2)
  - Impaired healing [Recovered/Resolved]
  - Hyperglycaemia [Unknown]
